FAERS Safety Report 9425849 (Version 1)
Quarter: 2013Q3

REPORT INFORMATION
  Report Type: Spontaneous
  Country: ZA (occurrence: ZA)
  Receive Date: 20130729
  Receipt Date: 20130729
  Transmission Date: 20140515
  Serious: Yes (Life-Threatening, Hospitalization)
  Sender: FDA-Public Use
  Company Number: ZA-B.I. PHARMACEUTICALS,INC./RIDGEFIELD-2013-BI-22288ZA

PATIENT
  Age: 70 Year
  Sex: Female
  Weight: 67 kg

DRUGS (5)
  1. PRADAXA [Suspect]
     Indication: PREMEDICATION
     Dosage: 220 MG
     Route: 048
     Dates: start: 20130416
  2. ARYCOR [Concomitant]
     Indication: HYPERTENSION
     Dosage: 200 MG
     Dates: start: 20130416
  3. CARDICOR [Concomitant]
     Dosage: 10 MG
     Dates: start: 20130418
  4. HORMONE REPLACEMENT THERAPY [Concomitant]
  5. ECOTRIN [Concomitant]

REACTIONS (8)
  - Cerebrovascular accident [Recovered/Resolved]
  - Paralysis [Recovered/Resolved]
  - Speech disorder [Recovered/Resolved]
  - Dizziness [Not Recovered/Not Resolved]
  - Tremor [Not Recovered/Not Resolved]
  - Fatigue [Not Recovered/Not Resolved]
  - Fatigue [Not Recovered/Not Resolved]
  - Feeling abnormal [Not Recovered/Not Resolved]
